FAERS Safety Report 23062496 (Version 7)
Quarter: 2024Q3

REPORT INFORMATION
  Report Type: Report from Study
  Country: GB (occurrence: GB)
  Receive Date: 20231013
  Receipt Date: 20240829
  Transmission Date: 20241017
  Serious: Yes (Other)
  Sender: NOVARTIS
  Company Number: GB-002147023-NVSC2022GB201634

PATIENT
  Age: 53 Year
  Sex: Male

DRUGS (5)
  1. KESIMPTA [Suspect]
     Active Substance: OFATUMUMAB
     Indication: Multiple sclerosis
     Dosage: 20 MG, QMO
     Route: 058
     Dates: start: 20220826
  2. KESIMPTA [Suspect]
     Active Substance: OFATUMUMAB
     Indication: Relapsing-remitting multiple sclerosis
     Dosage: UNK
     Route: 065
     Dates: start: 20230615
  3. KESIMPTA [Suspect]
     Active Substance: OFATUMUMAB
     Dosage: 20 MG, QW (TITRATION)
     Route: 058
     Dates: start: 20240709
  4. KESIMPTA [Suspect]
     Active Substance: OFATUMUMAB
     Dosage: 20 MG ONCE VERY TWO WEEKS
     Route: 058
     Dates: start: 20240709
  5. KESIMPTA [Suspect]
     Active Substance: OFATUMUMAB
     Dosage: 20 MG, QMO
     Route: 058

REACTIONS (19)
  - Lower respiratory tract infection [Unknown]
  - Kidney infection [Unknown]
  - Inappropriate schedule of product administration [Unknown]
  - Cellulitis [Not Recovered/Not Resolved]
  - Urinary tract infection [Unknown]
  - Influenza like illness [Unknown]
  - Malaise [Unknown]
  - Fatigue [Recovered/Resolved with Sequelae]
  - Hypersomnia [Recovered/Resolved]
  - Depressed mood [Not Recovered/Not Resolved]
  - Fatigue [Recovered/Resolved]
  - Pain [Recovered/Resolved]
  - Musculoskeletal stiffness [Unknown]
  - Confusional state [Unknown]
  - General physical health deterioration [Unknown]
  - Fatigue [Unknown]
  - Emotional disorder [Unknown]
  - Mental disorder [Unknown]
  - Product dose omission in error [Recovered/Resolved]

NARRATIVE: CASE EVENT DATE: 20220827
